FAERS Safety Report 7832549-3 (Version None)
Quarter: 2011Q4

REPORT INFORMATION
  Report Type: 
  Country: None (occurrence: None)
  Receive Date: 20111024
  Receipt Date: 20111012
  Transmission Date: 20120403
  Serious: Yes (Hospitalization)
  Sender: FDA-Public Use
  Company Number: US-BIOGENIDEC-2011BI039168

PATIENT
  Age: 35 Year
  Sex: Female

DRUGS (2)
  1. TYSABRI [Suspect]
     Indication: MULTIPLE SCLEROSIS
     Route: 042
     Dates: start: 20090615
  2. TYSABRI [Suspect]
     Route: 042
     Dates: start: 20070326, end: 20080225

REACTIONS (4)
  - FALL [None]
  - TENDON INJURY [None]
  - NAUSEA [None]
  - ABDOMINAL PAIN UPPER [None]
